FAERS Safety Report 10135758 (Version 1)
Quarter: 2014Q2

REPORT INFORMATION
  Report Type: Spontaneous
  Country: GB (occurrence: GB)
  Receive Date: 20140428
  Receipt Date: 20140428
  Transmission Date: 20141212
  Serious: Yes (Other)
  Sender: FDA-Public Use
  Company Number: PHHY2014GB050584

PATIENT
  Sex: Male

DRUGS (5)
  1. ACETYLSALICYLIC ACID [Suspect]
     Dosage: 75 MG, UNK
  2. ATORVASTATIN [Suspect]
     Dosage: 40 MG, UNK
  3. BISOPROLOL [Suspect]
     Dosage: 5 MG, UNK
  4. CLOPIDOGREL [Suspect]
  5. RAMIPRIL [Concomitant]
     Dosage: 2.5 MG, UNK

REACTIONS (2)
  - Toothache [Unknown]
  - Sensitivity of teeth [Unknown]
